FAERS Safety Report 20141044 (Version 2)
Quarter: 2021Q4

REPORT INFORMATION
  Report Type: Spontaneous
  Country: US (occurrence: US)
  Receive Date: 20211202
  Receipt Date: 20211209
  Transmission Date: 20220303
  Serious: Yes (Other)
  Sender: FDA-Public Use
  Company Number: US-TAKEDA-2021TUS076027

PATIENT
  Sex: Male
  Weight: 87 kg

DRUGS (1)
  1. VYVANSE [Suspect]
     Active Substance: LISDEXAMFETAMINE DIMESYLATE
     Indication: Attention deficit hyperactivity disorder
     Dosage: 50 MILLIGRAM
     Route: 065

REACTIONS (4)
  - Drug dependence [Unknown]
  - Inappropriate schedule of product administration [Unknown]
  - Disturbance in attention [Unknown]
  - Drug ineffective [Unknown]
